FAERS Safety Report 25792671 (Version 1)
Quarter: 2025Q3

REPORT INFORMATION
  Report Type: Report from Study
  Country: US (occurrence: US)
  Receive Date: 20250911
  Receipt Date: 20250911
  Transmission Date: 20251021
  Serious: No
  Sender: MALLINCKRODT
  Company Number: US-MALLINCKRODT-MNK202502450

PATIENT
  Sex: Female

DRUGS (2)
  1. CORTICOTROPIN [Suspect]
     Active Substance: CORTICOTROPIN
     Indication: Keratitis
  2. BLINK [HYALURONATE SODIUM;PHOSPHORIC ACID SODIUM;SODIUM PHOSPHATE DIBA [Concomitant]

REACTIONS (3)
  - Eye irritation [Not Recovered/Not Resolved]
  - Eye disorder [Unknown]
  - Foreign body sensation in eyes [Unknown]
